FAERS Safety Report 15210865 (Version 1)
Quarter: 2018Q3

REPORT INFORMATION
  Report Type: Report from Study
  Country: US (occurrence: US)
  Receive Date: 20180728
  Receipt Date: 20180728
  Transmission Date: 20181010
  Serious: Yes (Hospitalization)
  Sender: FDA-Public Use
  Company Number: US-SAKK-2018SA193511AA

PATIENT
  Age: 69 Year
  Sex: Female

DRUGS (1)
  1. INSULIN GLARGINE [Suspect]
     Active Substance: INSULIN GLARGINE
     Indication: DIABETES MELLITUS
     Dosage: 30 U, BID
     Route: 058
     Dates: start: 2012

REACTIONS (5)
  - Gait disturbance [Recovered/Resolved]
  - Myocardial necrosis marker increased [Recovered/Resolved]
  - Atrioventricular block [Not Recovered/Not Resolved]
  - Malaise [Recovered/Resolved]
  - Blood glucose decreased [Recovered/Resolved]
